FAERS Safety Report 19381062 (Version 1)
Quarter: 2021Q2

REPORT INFORMATION
  Report Type: Spontaneous
  Country: US (occurrence: US)
  Receive Date: 20210607
  Receipt Date: 20210607
  Transmission Date: 20210717
  Serious: Yes (Other)
  Sender: FDA-Public Use
  Company Number: US-AUROBINDO-AUR-APL-2019-084046

PATIENT
  Age: 67 Year
  Sex: Female
  Weight: 125 kg

DRUGS (3)
  1. CITALOPRAM [Suspect]
     Active Substance: CITALOPRAM HYDROBROMIDE
     Indication: PRODUCT USED FOR UNKNOWN INDICATION
     Dosage: 40 MILLIGRAM, TWO TIMES A DAY
     Route: 065
  2. VALSARTAN TABLETS [Suspect]
     Active Substance: VALSARTAN
     Indication: PRODUCT USED FOR UNKNOWN INDICATION
     Dosage: ON EMPTY STOMACH ABOUT 3H PRIOR TO SCHEDULED START OF SURGERY
     Route: 065
  3. CARVEDILOL TABLETS [Suspect]
     Active Substance: CARVEDILOL
     Indication: PRODUCT USED FOR UNKNOWN INDICATION
     Dosage: 25 MILLIGRAM
     Route: 065

REACTIONS (2)
  - Hypotension [Recovered/Resolved]
  - Medication error [Recovered/Resolved]
